FAERS Safety Report 15423098 (Version 1)
Quarter: 2018Q4

REPORT INFORMATION
  Report Type: Other
  Country: US (occurrence: US)
  Receive Date: 20180925
  Receipt Date: 20180925
  Transmission Date: 20190204
  Serious: Yes (Life-Threatening)
  Sender: FDA-Public Use
  Company Number: US-GUARDIAN DRUG COMPANY-2055303

PATIENT
  Age: 17 Year
  Sex: Male

DRUGS (7)
  1. LORATADINE. [Suspect]
     Active Substance: LORATADINE
     Route: 065
  2. PROMETHAZINE [Suspect]
     Active Substance: PROMETHAZINE\PROMETHAZINE HYDROCHLORIDE
     Route: 065
  3. IBUPROFEN ORAL SUSPENSION USP, 100 MG/5 ML (OTC)-210149 [Suspect]
     Active Substance: IBUPROFEN
     Route: 065
  4. DEXTROMETHORPHAN [Suspect]
     Active Substance: DEXTROMETHORPHAN
     Route: 065
  5. ACETAMINOPHEN. [Suspect]
     Active Substance: ACETAMINOPHEN
     Route: 065
  6. LOPERAMIDE HYDROCHLORIDE. [Suspect]
     Active Substance: LOPERAMIDE HYDROCHLORIDE
     Route: 065
  7. GUAIFENESIN EXTENDED-RELEASE 600 MG [Suspect]
     Active Substance: GUAIFENESIN
     Indication: PRODUCT USED FOR UNKNOWN INDICATION
     Route: 065

REACTIONS (11)
  - Respiratory depression [Unknown]
  - Irritability [Unknown]
  - Somnolence [Unknown]
  - Electrolyte imbalance [Unknown]
  - Lethargy [Unknown]
  - Suicide attempt [Unknown]
  - Agitation [Unknown]
  - Conduction disorder [Unknown]
  - Confusional state [Unknown]
  - Vomiting [Unknown]
  - Dyspnoea [Unknown]
